FAERS Safety Report 9717500 (Version 1)
Quarter: 2013Q4

REPORT INFORMATION
  Report Type: Spontaneous
  Country: US (occurrence: US)
  Receive Date: 20131127
  Receipt Date: 20131127
  Transmission Date: 20140711
  Serious: No
  Sender: FDA-Public Use
  Company Number: US-GILEAD-2009-0020460

PATIENT
  Sex: Female
  Weight: 106.59 kg

DRUGS (16)
  1. LETAIRIS [Suspect]
     Indication: PULMONARY ARTERIAL HYPERTENSION
     Route: 048
     Dates: start: 20081120, end: 20090222
  2. AMITRIPTYLINE [Concomitant]
  3. GLIPIZIDE [Concomitant]
  4. METFORMIN [Concomitant]
  5. GENTLE IRON [Concomitant]
  6. POTASSIUM CHLORIDE [Concomitant]
  7. MORPHINE SULF [Concomitant]
  8. SPIRIVA [Concomitant]
  9. ASPIRIN [Concomitant]
  10. VYTORIN [Concomitant]
  11. BENICAR HCT [Concomitant]
  12. COENZYME Q-10 [Concomitant]
  13. ALBUTEROL [Concomitant]
  14. CARTIA XT [Concomitant]
  15. VITAMIN E [Concomitant]
  16. GOOD BACTERIA [Concomitant]

REACTIONS (1)
  - Oedema peripheral [Unknown]
